FAERS Safety Report 24890242 (Version 1)
Quarter: 2025Q1

REPORT INFORMATION
  Report Type: Spontaneous
  Country: US (occurrence: US)
  Receive Date: 20250127
  Receipt Date: 20250127
  Transmission Date: 20250408
  Serious: Yes (Hospitalization)
  Sender: NOVARTIS
  Company Number: US-002147023-NVSC2025US012448

PATIENT
  Sex: Male

DRUGS (2)
  1. MEKINIST [Suspect]
     Active Substance: TRAMETINIB DIMETHYL SULFOXIDE
     Indication: Langerhans^ cell histiocytosis
     Dosage: 10 ML, QD (ORAL SUSPENSION)
     Route: 048
     Dates: start: 202501
  2. TAFINLAR [Suspect]
     Active Substance: DABRAFENIB MESYLATE
     Indication: Langerhans^ cell histiocytosis
     Dosage: 45 MG, BID
     Route: 048
     Dates: start: 202501

REACTIONS (4)
  - Catheter site infection [Unknown]
  - Norovirus infection [Unknown]
  - Epistaxis [Unknown]
  - Off label use [Unknown]
